FAERS Safety Report 5359105-3 (Version None)
Quarter: 2007Q2

REPORT INFORMATION
  Report Type: 
  Country: None (occurrence: None)
  Receive Date: 20070530
  Receipt Date: 20070331
  Transmission Date: 20071010
  Serious: No
  Sender: FDA-Public Use
  Company Number: 2007PV032743

PATIENT
  Age: 44 Year
  Sex: Female
  Weight: 141.5223 kg

DRUGS (4)
  1. BYETTA [Suspect]
     Indication: DIABETES MELLITUS NON-INSULIN-DEPENDENT
     Dosage: 5 MCG; BID;SC
     Route: 058
     Dates: start: 20070301
  2. JANUVIA [Concomitant]
  3. GLUMETZA [Concomitant]
  4. STARLIX [Concomitant]

REACTIONS (5)
  - DRUG INEFFECTIVE [None]
  - HYPERGLYCAEMIA [None]
  - HYPERSENSITIVITY [None]
  - SINUS DISORDER [None]
  - WEIGHT DECREASED [None]
